FAERS Safety Report 10774612 (Version 1)
Quarter: 2015Q1

REPORT INFORMATION
  Report Type: Spontaneous
  Country: GB (occurrence: GB)
  Receive Date: 20150209
  Receipt Date: 20150209
  Transmission Date: 20150721
  Serious: Yes (Other)
  Sender: FDA-Public Use
  Company Number: GB-DRREDDYS-GER/UKI/15/0045816

PATIENT
  Age: 85 Year
  Sex: Female
  Weight: 68 kg

DRUGS (20)
  1. CHIROCAINE [Suspect]
     Active Substance: LEVOBUPIVACAINE HYDROCHLORIDE
     Indication: EPIDURAL ANAESTHESIA
     Route: 008
  2. MARCAIN HEAVY [Suspect]
     Active Substance: BUPIVACAINE HYDROCHLORIDE
     Indication: EPIDURAL ANAESTHESIA
     Route: 008
  3. METARAMINOL [Suspect]
     Active Substance: METARAMINOL
     Indication: PRODUCT USED FOR UNKNOWN INDICATION
     Route: 065
  4. LERCANIDIPINE [Concomitant]
     Active Substance: LERCANIDIPINE
     Indication: HYPERTENSION
  5. FENTANYL. [Suspect]
     Active Substance: FENTANYL
     Route: 008
  6. POTASSIUM CHLORIDE. [Suspect]
     Active Substance: POTASSIUM CHLORIDE
     Indication: PRODUCT USED FOR UNKNOWN INDICATION
  7. CANDESARTAN [Concomitant]
     Active Substance: CANDESARTAN
     Indication: HYPERTENSION
  8. EPHEDRINE [Suspect]
     Active Substance: EPHEDRINE
     Indication: PRODUCT USED FOR UNKNOWN INDICATION
  9. PLASMA-LYTE 148 [Suspect]
     Active Substance: MAGNESIUM CHLORIDE\POTASSIUM CHLORIDE\SODIUM ACETATE\SODIUM CHLORIDE\SODIUM GLUCONATE
     Indication: ANAESTHETIC PREMEDICATION
     Route: 042
     Dates: start: 20150116
  10. BAXTER SODIUM CHLORIDE INFUSION BP 0.9%W/V [Suspect]
     Active Substance: SODIUM CHLORIDE
     Indication: PRODUCT USED FOR UNKNOWN INDICATION
     Route: 042
  11. PROPOFOL. [Suspect]
     Active Substance: PROPOFOL
     Indication: EPIDURAL ANAESTHESIA
  12. OMEPRAZOLE. [Suspect]
     Active Substance: OMEPRAZOLE
     Indication: ANAESTHETIC PREMEDICATION
  13. FENTANYL. [Suspect]
     Active Substance: FENTANYL
     Indication: EPIDURAL ANAESTHESIA
     Route: 008
  14. PLASMA-LYTE 148 [Suspect]
     Active Substance: MAGNESIUM CHLORIDE\POTASSIUM CHLORIDE\SODIUM ACETATE\SODIUM CHLORIDE\SODIUM GLUCONATE
     Indication: HIP ARTHROPLASTY
  15. ATENOLOL. [Concomitant]
     Active Substance: ATENOLOL
     Indication: HYPERTENSION
  16. PREGABALIN. [Suspect]
     Active Substance: PREGABALIN
     Indication: ANAESTHETIC PREMEDICATION
  17. SODIUM LACTATE SOLUTION [Suspect]
     Active Substance: SODIUM LACTATE
     Indication: PRODUCT USED FOR UNKNOWN INDICATION
     Route: 065
  18. TEICOPLANIN [Suspect]
     Active Substance: TEICOPLANIN
     Indication: ANAESTHETIC PREMEDICATION
     Route: 065
  19. DIAMORPHINE [Suspect]
     Active Substance: DIACETYLMORPHINE
     Indication: SURGERY
     Route: 008
  20. GENTAMICIN. [Suspect]
     Active Substance: GENTAMICIN
     Indication: ANAESTHETIC PREMEDICATION
     Route: 065

REACTIONS (4)
  - Confusion postoperative [Unknown]
  - Mental status changes postoperative [Recovering/Resolving]
  - Metabolic alkalosis [Unknown]
  - Unevaluable event [Unknown]

NARRATIVE: CASE EVENT DATE: 20150116
